FAERS Safety Report 20733319 (Version 1)
Quarter: 2022Q2

REPORT INFORMATION
  Report Type: Spontaneous
  Country: US (occurrence: US)
  Receive Date: 20220421
  Receipt Date: 20220421
  Transmission Date: 20220721
  Serious: Yes (Hospitalization)
  Sender: FDA-Public Use
  Company Number: US-SNT-000268

PATIENT
  Sex: Male

DRUGS (2)
  1. BUPROPION [Suspect]
     Active Substance: BUPROPION
     Indication: Product used for unknown indication
     Dosage: CRUSHING AND INSUFFLATING 8 TO 9 RANDOM COMBINATIONS OF 150MG AND 300MG TABLET EVERY OTHER DAY
     Route: 045
  2. BUPROPION [Suspect]
     Active Substance: BUPROPION
     Indication: Product used for unknown indication
     Dosage: CRUSHING AND INSUFFLATING 8 TO 9 RANDOM COMBINATIONS OF 300-MG BUPROPION EVERY OTHER DAY (HIGH DOSE)
     Route: 045

REACTIONS (7)
  - Drug abuse [Unknown]
  - Hallucinations, mixed [Recovered/Resolved]
  - Suicidal ideation [Recovered/Resolved]
  - Hyponatraemia [Recovered/Resolved]
  - Psychotic disorder [Unknown]
  - Disruptive mood dysregulation disorder [Unknown]
  - Incorrect route of product administration [Unknown]
